FAERS Safety Report 10419975 (Version 2)
Quarter: 2014Q3

REPORT INFORMATION
  Report Type: Report from Study
  Country: KR (occurrence: KR)
  Receive Date: 20140829
  Receipt Date: 20140829
  Transmission Date: 20150326
  Serious: Yes (Hospitalization)
  Sender: FDA-Public Use
  Company Number: KR-GILEAD-2014-0103638

PATIENT
  Age: 62 Year
  Sex: Female
  Weight: 56.9 kg

DRUGS (10)
  1. IDELALISIB [Suspect]
     Active Substance: IDELALISIB
     Indication: NON-HODGKIN^S LYMPHOMA
     Dosage: 150 MG, BID
     Route: 048
     Dates: start: 20140515, end: 20140523
  2. CHLORPHENTERMINE [Concomitant]
     Active Substance: CHLORPHENTERMINE
     Indication: CHEMOTHERAPY
  3. RITUXIMAB [Suspect]
     Active Substance: RITUXIMAB
     Indication: NON-HODGKIN^S LYMPHOMA
     Dosage: 585 MG, CYCLICAL
     Route: 042
     Dates: start: 20140515, end: 20140515
  4. ACETAMINOPHEN. [Concomitant]
     Active Substance: ACETAMINOPHEN
     Indication: PREMEDICATION
     Dosage: UNK
     Route: 065
     Dates: start: 20140515, end: 20140515
  5. ACETAMINOPHEN. [Concomitant]
     Active Substance: ACETAMINOPHEN
     Indication: CHEMOTHERAPY
  6. BENDAMUSTINE [Suspect]
     Active Substance: BENDAMUSTINE
     Indication: NON-HODGKIN^S LYMPHOMA
     Dosage: 140 MG, CYCLICAL
     Route: 042
     Dates: start: 20140515, end: 20140516
  7. PALONOSETRON [Concomitant]
     Active Substance: PALONOSETRON
     Indication: PREMEDICATION
     Dosage: UNK
     Route: 065
     Dates: start: 20140515, end: 20140516
  8. IDELALISIB [Suspect]
     Active Substance: IDELALISIB
     Dosage: 100 UNK, UNK
     Route: 048
     Dates: start: 20140603
  9. CHLORPHENTERMINE [Concomitant]
     Active Substance: CHLORPHENTERMINE
     Indication: PREMEDICATION
     Dosage: UNK
     Route: 065
     Dates: start: 20140515, end: 20140515
  10. PALONOSETRON [Concomitant]
     Active Substance: PALONOSETRON
     Indication: CHEMOTHERAPY

REACTIONS (3)
  - Urticaria [Recovered/Resolved]
  - Chills [Recovered/Resolved]
  - Abdominal pain [Recovered/Resolved]

NARRATIVE: CASE EVENT DATE: 20140523
